FAERS Safety Report 9605851 (Version 2)
Quarter: 2014Q4

REPORT INFORMATION
  Report Type: Spontaneous
  Country: US (occurrence: US)
  Receive Date: 20131008
  Receipt Date: 20141006
  Transmission Date: 20150529
  Serious: No
  Sender: FDA-Public Use
  Company Number: US-AMGEN-USASP2013067986

PATIENT
  Age: 79 Year
  Sex: Male
  Weight: 93.42 kg

DRUGS (6)
  1. DEXAMETHASONE. [Concomitant]
     Active Substance: DEXAMETHASONE
     Indication: NAUSEA
     Dosage: 12 MG, Q3WK
     Route: 042
     Dates: start: 20130312, end: 20130705
  2. XGEVA [Suspect]
     Active Substance: DENOSUMAB
     Indication: METASTASES TO BONE
     Dosage: 120 MG, Q4WK
     Route: 058
     Dates: start: 20130403
  3. ETOPOSIDE. [Concomitant]
     Active Substance: ETOPOSIDE
     Indication: PROSTATE CANCER
     Dosage: 220 MG, Q3WK
     Route: 042
     Dates: start: 20130312, end: 20130705
  4. CARBOPLATIN. [Concomitant]
     Active Substance: CARBOPLATIN
     Indication: PROSTATE CANCER
     Dosage: 690 MG, Q3WK
     Route: 042
     Dates: start: 20130312, end: 20130705
  5. NEULASTA [Concomitant]
     Active Substance: PEGFILGRASTIM
     Indication: PANCYTOPENIA
     Dosage: 6 MG, Q3WK
     Route: 058
     Dates: start: 20130613, end: 20130706
  6. ONDANSETRON [Concomitant]
     Active Substance: ONDANSETRON
     Indication: NAUSEA
     Dosage: 12 MG, Q3WK
     Route: 042
     Dates: start: 20130312, end: 20130705

REACTIONS (1)
  - Tooth disorder [Recovering/Resolving]

NARRATIVE: CASE EVENT DATE: 20130925
